FAERS Safety Report 6359650-8 (Version None)
Quarter: 2009Q3

REPORT INFORMATION
  Report Type: 
  Country: None (occurrence: None)
  Receive Date: 20090917
  Receipt Date: 20090911
  Transmission Date: 20100115
  Serious: Yes (Hospitalization, Other)
  Sender: FDA-Public Use
  Company Number: US-BAYER-200914165BCC

PATIENT
  Age: 83 Year
  Sex: Male
  Weight: 77 kg

DRUGS (1)
  1. PHILLIPS MILK OF MAGNESIA CLASSIC MINT LIQUID [Suspect]
     Indication: CONSTIPATION
     Dosage: CONSUMER TOOK 4 TABLESPOONS
     Route: 048
     Dates: start: 20090910

REACTIONS (1)
  - CONSTIPATION [None]
